FAERS Safety Report 8902536 (Version 1)
Quarter: 2012Q4

REPORT INFORMATION
  Report Type: 
  Country: US (occurrence: US)
  Receive Date: 20121112
  Receipt Date: 20121112
  Transmission Date: 20130627
  Serious: No
  Sender: FDA-Public Use
  Company Number: US-MYLANLABS-2012S1016880

PATIENT
  Age: 7 None
  Sex: Female

DRUGS (1)
  1. ISOSULFAN BLUE [Suspect]
     Route: 042
     Dates: start: 20120813

REACTIONS (1)
  - Incorrect route of drug administration [Unknown]
